FAERS Safety Report 13591789 (Version 4)
Quarter: 2018Q1

REPORT INFORMATION
  Report Type: Report from Study
  Country: US (occurrence: US)
  Receive Date: 20170530
  Receipt Date: 20180302
  Transmission Date: 20180508
  Serious: Yes (Hospitalization, Other)
  Sender: FDA-Public Use
  Company Number: US-ARIAD-2017US008289

PATIENT
  Sex: Female

DRUGS (3)
  1. PONATINIB [Suspect]
     Active Substance: PONATINIB
     Dosage: 45 MG, QD
     Route: 048
  2. PONATINIB [Suspect]
     Active Substance: PONATINIB
     Dosage: 15 MG, QD
     Route: 048
  3. PONATINIB [Suspect]
     Active Substance: PONATINIB
     Indication: ACUTE LYMPHOCYTIC LEUKAEMIA
     Dosage: 30 MG, QD
     Route: 048
     Dates: start: 201610

REACTIONS (19)
  - Leukocytosis [Unknown]
  - Blood lactic acid increased [Unknown]
  - Liver function test increased [Unknown]
  - Activated partial thromboplastin time shortened [Unknown]
  - Prothrombin time shortened [Unknown]
  - Transplant [Unknown]
  - Acute lymphocytic leukaemia recurrent [Not Recovered/Not Resolved]
  - Febrile neutropenia [Unknown]
  - Somnolence [Unknown]
  - Blood prolactin increased [Unknown]
  - Dry skin [Unknown]
  - Hyperbilirubinaemia [Unknown]
  - Alanine aminotransferase increased [Unknown]
  - Rales [Unknown]
  - Graft versus host disease in lung [Unknown]
  - Fatigue [Unknown]
  - Tachycardia [Unknown]
  - Stem cell transplant [Unknown]
  - Infection [Unknown]
